FAERS Safety Report 8799574 (Version 4)
Quarter: 2013Q1

REPORT INFORMATION
  Report Type: Spontaneous
  Country: US (occurrence: US)
  Receive Date: 20120919
  Receipt Date: 20130305
  Transmission Date: 20140127
  Serious: Yes (Other)
  Sender: FDA-Public Use
  Company Number: US-PFIZER INC-2012230334

PATIENT
  Age: 37 Year
  Sex: Male
  Weight: 90.7 kg

DRUGS (3)
  1. DILANTIN [Suspect]
     Indication: CONVULSION
     Dosage: 100 MG, 3X/DAY
     Dates: start: 2010, end: 201208
  2. PROZAC [Concomitant]
     Dosage: 40 MG, DAILY
  3. TRAZODONE HYDROCHLORIDE [Concomitant]
     Dosage: 100 MG, DAILY

REACTIONS (1)
  - Convulsion [Unknown]
